FAERS Safety Report 16467155 (Version 1)
Quarter: 2019Q2

REPORT INFORMATION
  Report Type: Spontaneous
  Country: US (occurrence: US)
  Receive Date: 20190624
  Receipt Date: 20190624
  Transmission Date: 20190711
  Serious: Yes (Hospitalization, Other)
  Sender: FDA-Public Use
  Company Number: US-HIKMA PHARMACEUTICALS USA INC.-US-H14001-19-04004

PATIENT
  Age: 57 Year
  Sex: Female

DRUGS (2)
  1. MORPHINE SULFATE. [Suspect]
     Active Substance: MORPHINE SULFATE
     Indication: CANCER PAIN
     Dosage: CONTROLLED RELEASE
     Route: 048
  2. MORPHINE SULFATE. [Suspect]
     Active Substance: MORPHINE SULFATE
     Indication: CANCER PAIN
     Dosage: IMMEDIATE-RELEASE, 30-45 MG, EVERY 3 HOURS
     Route: 048

REACTIONS (12)
  - Neurotoxicity [Recovering/Resolving]
  - Malaise [Recovering/Resolving]
  - Sleep disorder [Recovering/Resolving]
  - Delirium [Recovering/Resolving]
  - Drug ineffective [Recovering/Resolving]
  - Muscle contractions involuntary [Recovering/Resolving]
  - Myoclonus [Recovering/Resolving]
  - Restlessness [Recovering/Resolving]
  - Toxic encephalopathy [Recovering/Resolving]
  - Constipation [Recovering/Resolving]
  - Confusional state [Recovering/Resolving]
  - Dehydration [Recovering/Resolving]
